FAERS Safety Report 26088026 (Version 1)
Quarter: 2025Q4

REPORT INFORMATION
  Report Type: Spontaneous
  Country: JP (occurrence: JP)
  Receive Date: 20251125
  Receipt Date: 20251125
  Transmission Date: 20260118
  Serious: Yes (Other)
  Sender: MERCK SHARP & DOHME LLC
  Company Number: JP-MSD-1909JPN001292J

PATIENT
  Age: 9 Decade
  Sex: Female
  Weight: 45 kg

DRUGS (11)
  1. BRIDION [Suspect]
     Active Substance: SUGAMMADEX SODIUM
     Indication: Neuromuscular blockade reversal
     Dosage: DOSE DESCRIPTION : UNK
     Route: 042
  2. MEPIVACAINE HYDROCHLORIDE [Concomitant]
     Active Substance: MEPIVACAINE HYDROCHLORIDE
     Indication: Epidural anaesthesia
     Dosage: DOSE DESCRIPTION : UNK
     Route: 065
  3. PROPOFOL [Concomitant]
     Active Substance: PROPOFOL
     Indication: Epidural anaesthesia
     Dosage: DOSE DESCRIPTION : UNK
     Route: 042
  4. LIDOCAINE [Concomitant]
     Active Substance: LIDOCAINE
     Indication: Epidural anaesthesia
     Dosage: DOSE DESCRIPTION : UNK
     Route: 042
  5. FENTANYL [Concomitant]
     Active Substance: FENTANYL
     Indication: Epidural anaesthesia
     Dosage: DOSE DESCRIPTION : UNK
     Route: 042
  6. REMIFENTANIL HYDROCHLORIDE [Concomitant]
     Active Substance: REMIFENTANIL HYDROCHLORIDE
     Indication: Epidural anaesthesia
     Dosage: DOSE DESCRIPTION : UNK
     Route: 042
  7. FLOMOXEF SODIUM [Concomitant]
     Active Substance: FLOMOXEF SODIUM
     Dosage: DOSE DESCRIPTION : UNK
     Route: 065
  8. SEVOFLURANE [Concomitant]
     Active Substance: SEVOFLURANE
     Indication: Maintenance of anaesthesia
     Dosage: DOSE DESCRIPTION : UNK
     Route: 065
  9. EPHEDRINE HYDROCHLORIDE [Concomitant]
     Active Substance: EPHEDRINE HYDROCHLORIDE
     Indication: Blood pressure increased
     Dosage: DOSE DESCRIPTION : UNK
     Route: 042
  10. LEVOBUPIVACAINE HYDROCHLORIDE [Concomitant]
     Active Substance: LEVOBUPIVACAINE HYDROCHLORIDE
     Indication: Epidural anaesthesia
     Dosage: DOSE DESCRIPTION : UNK
  11. ROCURONIUM BROMIDE [Concomitant]
     Active Substance: ROCURONIUM BROMIDE
     Indication: Epidural anaesthesia
     Dosage: DOSE DESCRIPTION : UNK
     Route: 042

REACTIONS (1)
  - Drug-induced liver injury [Recovering/Resolving]
